FAERS Safety Report 10535901 (Version 7)
Quarter: 2015Q4

REPORT INFORMATION
  Report Type: Spontaneous
  Country: US (occurrence: US)
  Receive Date: 20141022
  Receipt Date: 20151113
  Transmission Date: 20160304
  Serious: No
  Sender: FDA-Public Use
  Company Number: US-PFIZER INC-2014285868

PATIENT
  Age: 54 Year
  Sex: Male
  Weight: 97 kg

DRUGS (26)
  1. PROCHLORPERAZINE. [Concomitant]
     Active Substance: PROCHLORPERAZINE
     Dosage: 10 MG, 4X/DAY
     Route: 048
     Dates: start: 20130404
  2. PRILOSEC [Concomitant]
     Active Substance: OMEPRAZOLE MAGNESIUM
     Dosage: 10 MG, UNK
  3. OXYCODONE [Concomitant]
     Active Substance: OXYCODONE
     Dosage: 15 MG, UNK
  4. XANAX [Concomitant]
     Active Substance: ALPRAZOLAM
     Dosage: 0.25 MG, UNK
  5. FOLIC ACID. [Concomitant]
     Active Substance: FOLIC ACID
     Dosage: 1 MG, 2X/DAY
     Route: 048
     Dates: start: 20120927
  6. SPRYCEL [Concomitant]
     Active Substance: DASATINIB
     Dosage: 70 MG, ONCE DAILY AS NEEDED
     Route: 048
     Dates: start: 20120926
  7. MEDROL [Concomitant]
     Active Substance: METHYLPREDNISOLONE
     Dosage: 4 MG, UNK (1 ADD CUSTOM SIG)
     Route: 048
     Dates: start: 20141113
  8. ZOVIRAX [Concomitant]
     Active Substance: ACYCLOVIR
     Dosage: 5 %, 2X/DAY (5% TOPICAL OINTMENT 1 BID)
     Route: 061
     Dates: start: 20130607
  9. PROCHLORPERAZINE. [Concomitant]
     Active Substance: PROCHLORPERAZINE
     Dosage: 10 MG, 4X/DAY
     Route: 048
     Dates: start: 20140302
  10. CARAFATE [Concomitant]
     Active Substance: SUCRALFATE
     Dosage: UNK, 3X/DAY (1G/10 ML ORAL SUSPENSION 10 TID)
     Route: 048
     Dates: start: 20121112
  11. BENADRYL [Concomitant]
     Active Substance: DIPHENHYDRAMINE HYDROCHLORIDE
     Dosage: 50 MG, UNK (UNIT: 1)
  12. ATENOLOL. [Concomitant]
     Active Substance: ATENOLOL
     Dosage: 50 MG, 1X/DAY
     Route: 048
     Dates: start: 20120926
  13. BENADRYL [Concomitant]
     Active Substance: DIPHENHYDRAMINE HYDROCHLORIDE
     Dosage: 25 MG, UNK (UNIT: 1)
  14. ZOFRAN [Concomitant]
     Active Substance: ONDANSETRON HYDROCHLORIDE
     Dosage: 4 MG, UNK
  15. DILAUDID [Concomitant]
     Active Substance: HYDROMORPHONE HYDROCHLORIDE
     Dosage: 4 MG, 4X/DAY
     Dates: start: 20130122
  16. GABAPENTIN. [Concomitant]
     Active Substance: GABAPENTIN
     Dosage: 300 MG, UNK
     Route: 048
     Dates: start: 20141110
  17. ONDANSETRON [Concomitant]
     Active Substance: ONDANSETRON
     Dosage: 4 MG, 3X/DAY
     Route: 048
     Dates: start: 20131127
  18. XANAX [Concomitant]
     Active Substance: ALPRAZOLAM
     Dosage: 1 MG, 3X/DAY
     Route: 048
     Dates: start: 20120926
  19. MILK OF MAGNESIA SUS [Concomitant]
     Dosage: UNK
  20. OXYCONTIN [Concomitant]
     Active Substance: OXYCODONE HYDROCHLORIDE
     Dosage: 10 MG, 2X/DAY
     Route: 048
     Dates: start: 20130122
  21. DECADRON [Concomitant]
     Active Substance: DEXAMETHASONE
     Dosage: 10 MG, UNK (10 UNITS)
  22. BOSULIF [Suspect]
     Active Substance: BOSUTINIB MONOHYDRATE
     Dosage: 500 MG, 1X/DAY WITH FOOD
     Route: 048
     Dates: start: 201410
  23. SEROQUEL [Concomitant]
     Active Substance: QUETIAPINE FUMARATE
     Indication: DEPRESSION
     Dosage: 25 MG, UNK
  24. PRILOSEC [Concomitant]
     Active Substance: OMEPRAZOLE MAGNESIUM
     Dosage: 20 MG, 1X/DAY
     Route: 048
     Dates: start: 20120926
  25. MIRALAX POW 335 NF [Concomitant]
     Dosage: UNK
  26. LEVAQUIN [Concomitant]
     Active Substance: LEVOFLOXACIN
     Dosage: 500 MG, 1X/DAY
     Route: 048
     Dates: start: 20141113

REACTIONS (14)
  - Faeces pale [Unknown]
  - Herpes zoster [Unknown]
  - Constipation [Unknown]
  - Eye swelling [Unknown]
  - Anxiety [Unknown]
  - Abdominal pain [Unknown]
  - Flushing [Unknown]
  - Nausea [Not Recovered/Not Resolved]
  - Rash [Recovering/Resolving]
  - Diarrhoea [Unknown]
  - Chromaturia [Unknown]
  - Depression [Unknown]
  - Vomiting [Not Recovered/Not Resolved]
  - Pain [Unknown]

NARRATIVE: CASE EVENT DATE: 2014
